FAERS Safety Report 16107499 (Version 14)
Quarter: 2019Q4

REPORT INFORMATION
  Report Type: Report from Study
  Country: PL (occurrence: PL)
  Receive Date: 20190322
  Receipt Date: 20191030
  Transmission Date: 20200122
  Serious: Yes (Death, Hospitalization)
  Sender: FDA-Public Use
  Company Number: PL-CELGENEUS-POL-20190304141

PATIENT
  Age: 71 Year
  Sex: Female
  Weight: 88 kg

DRUGS (33)
  1. NACL [Concomitant]
     Active Substance: SODIUM CHLORIDE
     Indication: PRODUCT USED FOR UNKNOWN INDICATION
     Route: 041
     Dates: start: 20190302, end: 20190302
  2. ATROVENT [Concomitant]
     Active Substance: IPRATROPIUM BROMIDE
     Indication: PRODUCT USED FOR UNKNOWN INDICATION
     Route: 055
     Dates: start: 20190305, end: 20190305
  3. CALCIUM [Concomitant]
     Active Substance: CALCIUM
     Indication: PRODUCT USED FOR UNKNOWN INDICATION
     Route: 041
     Dates: start: 20190301, end: 20190303
  4. VANATEX [Concomitant]
     Indication: PRODUCT USED FOR UNKNOWN INDICATION
     Route: 048
     Dates: start: 2004, end: 20190317
  5. KALIPOZ-PROLONGATUM [Concomitant]
     Active Substance: POTASSIUM CHLORIDE
     Indication: PRODUCT USED FOR UNKNOWN INDICATION
     Route: 048
     Dates: start: 20190301, end: 20190317
  6. ADRENALINE [Concomitant]
     Active Substance: EPINEPHRINE
     Indication: MULTIPLE ORGAN DYSFUNCTION SYNDROME
  7. SPIRONOL [Concomitant]
     Active Substance: SPIRONOLACTONE
     Route: 048
     Dates: start: 20190301, end: 20190317
  8. GLUCOSE [Concomitant]
     Active Substance: DEXTROSE
     Indication: PRODUCT USED FOR UNKNOWN INDICATION
     Route: 041
     Dates: start: 20190302, end: 20190302
  9. ATORIS [Concomitant]
     Active Substance: ATORVASTATIN CALCIUM
     Indication: PRODUCT USED FOR UNKNOWN INDICATION
     Route: 048
     Dates: start: 20190219, end: 20190305
  10. NORMAL SALINE [Concomitant]
     Active Substance: SODIUM CHLORIDE
     Indication: PRODUCT USED FOR UNKNOWN INDICATION
     Route: 041
     Dates: start: 20190227, end: 20190303
  11. FUROSEMIDUM [Concomitant]
     Active Substance: FUROSEMIDE
     Indication: PRODUCT USED FOR UNKNOWN INDICATION
     Route: 048
     Dates: start: 2004
  12. ACTRAPID [Concomitant]
     Active Substance: INSULIN HUMAN
     Indication: PRODUCT USED FOR UNKNOWN INDICATION
     Dosage: 16 UNITS
     Route: 041
     Dates: start: 20190302, end: 20190302
  13. VANATEX [Concomitant]
     Route: 048
     Dates: start: 2004, end: 20190317
  14. ACARD [Concomitant]
     Active Substance: ASPIRIN
     Indication: PRODUCT USED FOR UNKNOWN INDICATION
     Route: 048
     Dates: start: 2004, end: 20190317
  15. SERONIL [Concomitant]
     Active Substance: FLUOXETINE HYDROCHLORIDE
     Indication: PRODUCT USED FOR UNKNOWN INDICATION
     Route: 048
     Dates: start: 1999, end: 20190317
  16. SERONIL [Concomitant]
     Active Substance: FLUOXETINE HYDROCHLORIDE
     Route: 048
     Dates: start: 1999, end: 20190317
  17. KCL [Concomitant]
     Active Substance: POTASSIUM CHLORIDE
     Indication: PRODUCT USED FOR UNKNOWN INDICATION
     Route: 041
     Dates: start: 20190228, end: 20190303
  18. AG-120 [Suspect]
     Active Substance: IVOSIDENIB
     Indication: ACUTE MYELOID LEUKAEMIA
     Route: 065
     Dates: start: 20190225, end: 20190228
  19. AZACITIDINE. [Suspect]
     Active Substance: AZACITIDINE
     Indication: ACUTE MYELOID LEUKAEMIA
     Dosage: 141.75 MG
     Route: 058
     Dates: start: 20190225, end: 20190228
  20. KALIPOZ-PROLONGATUM [Concomitant]
     Active Substance: POTASSIUM CHLORIDE
     Route: 048
     Dates: start: 20190301, end: 20190317
  21. BETALOC [Concomitant]
     Active Substance: METOPROLOL TARTRATE
     Indication: PRODUCT USED FOR UNKNOWN INDICATION
     Route: 041
     Dates: start: 20190302, end: 20190302
  22. NORMAL SALINE [Concomitant]
     Active Substance: SODIUM CHLORIDE
     Route: 041
     Dates: start: 20190227, end: 20190303
  23. NORMAL SALINE [Concomitant]
     Active Substance: SODIUM CHLORIDE
     Route: 041
     Dates: start: 20190227, end: 20190303
  24. AG-120 [Suspect]
     Active Substance: IVOSIDENIB
     Route: 065
     Dates: start: 20190301, end: 20190301
  25. ZOFRAN [Concomitant]
     Active Substance: ONDANSETRON HYDROCHLORIDE
     Route: 041
     Dates: start: 20190225, end: 20190317
  26. FUROSEMIDUM [Concomitant]
     Active Substance: FUROSEMIDE
     Route: 048
     Dates: start: 2004
  27. ADRENALINE [Concomitant]
     Active Substance: EPINEPHRINE
     Indication: PNEUMONIA
     Route: 065
     Dates: start: 20190317, end: 20190317
  28. ADRENALINE [Concomitant]
     Active Substance: EPINEPHRINE
     Indication: FEBRILE NEUTROPENIA
  29. MAGNESIUM SULFATE. [Concomitant]
     Active Substance: MAGNESIUM SULFATE
     Indication: PRODUCT USED FOR UNKNOWN INDICATION
     Route: 041
     Dates: start: 20190302, end: 20190302
  30. ZOFRAN [Concomitant]
     Active Substance: ONDANSETRON HYDROCHLORIDE
     Indication: PRODUCT USED FOR UNKNOWN INDICATION
     Route: 048
     Dates: start: 20190225, end: 20190317
  31. SPIRONOL [Concomitant]
     Active Substance: SPIRONOLACTONE
     Indication: PRODUCT USED FOR UNKNOWN INDICATION
     Route: 048
     Dates: start: 20190301, end: 20190317
  32. KCL [Concomitant]
     Active Substance: POTASSIUM CHLORIDE
     Dosage: 1.5 GRAM
     Route: 041
     Dates: start: 20190228, end: 20190303
  33. NORMAL SALINE [Concomitant]
     Active Substance: SODIUM CHLORIDE
     Route: 041
     Dates: start: 20190227, end: 20190303

REACTIONS (4)
  - Multiple organ dysfunction syndrome [Fatal]
  - Enterobacter pneumonia [Not Recovered/Not Resolved]
  - Bronchopulmonary aspergillosis [Not Recovered/Not Resolved]
  - Febrile neutropenia [Not Recovered/Not Resolved]

NARRATIVE: CASE EVENT DATE: 20190301
